FAERS Safety Report 9764496 (Version 1)
Quarter: 2013Q4

REPORT INFORMATION
  Report Type: Spontaneous
  Country: AR (occurrence: AR)
  Receive Date: 20131217
  Receipt Date: 20131217
  Transmission Date: 20140711
  Serious: Yes (Other)
  Sender: FDA-Public Use
  Company Number: AR-BRISTOL-MYERS SQUIBB COMPANY-19887918

PATIENT
  Sex: Female

DRUGS (1)
  1. ABATACEPT [Suspect]
     Dosage: INF
     Dates: start: 2013

REACTIONS (2)
  - Stress fracture [Unknown]
  - Pain in extremity [Unknown]
